FAERS Safety Report 14856899 (Version 1)
Quarter: 2018Q2

REPORT INFORMATION
  Report Type: Spontaneous
  Country: US (occurrence: US)
  Receive Date: 20180507
  Receipt Date: 20180507
  Transmission Date: 20180711
  Serious: No
  Sender: FDA-Public Use
  Company Number: US-ROCHE-2021429

PATIENT
  Sex: Male

DRUGS (6)
  1. PREDNISONE. [Concomitant]
     Active Substance: PREDNISONE
  2. ESBRIET [Suspect]
     Active Substance: PIRFENIDONE
     Indication: IDIOPATHIC PULMONARY FIBROSIS
     Dosage: 3 TABLETS THREE TIMES A DAY
     Route: 048
     Dates: start: 20170719
  3. ALLOPURINOL. [Concomitant]
     Active Substance: ALLOPURINOL
     Route: 065
  4. DUTASTERIDE. [Concomitant]
     Active Substance: DUTASTERIDE
  5. ESBRIET [Suspect]
     Active Substance: PIRFENIDONE
     Dosage: 3 TABLETS THREE TIMES A DAY
     Route: 048
     Dates: start: 20170725
  6. TAMSULOSIN HCL [Concomitant]
     Active Substance: TAMSULOSIN HYDROCHLORIDE

REACTIONS (1)
  - Arthralgia [Not Recovered/Not Resolved]
